FAERS Safety Report 6146951-1 (Version None)
Quarter: 2009Q2

REPORT INFORMATION
  Report Type: 
  Country: None (occurrence: None)
  Receive Date: 20090407
  Receipt Date: 20090326
  Transmission Date: 20091009
  Serious: Yes (Other)
  Sender: FDA-Public Use
  Company Number: CH-ELI_LILLY_AND_COMPANY-CH200903006831

PATIENT
  Age: 23 Year
  Sex: Male
  Weight: 61 kg

DRUGS (2)
  1. ZYPREXA [Suspect]
     Indication: SCHIZOPHRENIA, UNDIFFERENTIATED TYPE
     Dosage: 2.5 MG, DAILY (1/D)
     Route: 048
     Dates: start: 20090203, end: 20090224
  2. HEPATITIS B VACCINE [Concomitant]
     Indication: HEPATITIS B
     Dates: start: 20090312

REACTIONS (1)
  - LEUKOPENIA [None]
